FAERS Safety Report 20868906 (Version 1)
Quarter: 2022Q2

REPORT INFORMATION
  Report Type: Spontaneous
  Country: US (occurrence: None)
  Receive Date: 20220524
  Receipt Date: 20220524
  Transmission Date: 20220720
  Serious: Yes (Hospitalization, Disabling)
  Sender: FDA-Public Use
  Company Number: None

PATIENT
  Sex: Female
  Weight: 81.65 kg

DRUGS (1)
  1. NEXPLANON [Suspect]
     Active Substance: ETONOGESTREL

REACTIONS (7)
  - Dysmenorrhoea [None]
  - Vaginal haemorrhage [None]
  - Abdominal pain [None]
  - Muscle spasms [None]
  - Breast pain [None]
  - Endometriosis [None]
  - Cyst [None]
